FAERS Safety Report 6809838-4 (Version None)
Quarter: 2010Q2

REPORT INFORMATION
  Report Type: 
  Country: None (occurrence: None)
  Receive Date: 20100630
  Receipt Date: 20100621
  Transmission Date: 20101027
  Serious: Yes (Other)
  Sender: FDA-Public Use
  Company Number: US-SANOFI-AVENTIS-2010SA036184

PATIENT
  Age: 70 Year
  Sex: Male

DRUGS (1)
  1. PLAVIX [Suspect]
     Indication: STENT PLACEMENT
     Route: 048
     Dates: start: 20100601

REACTIONS (10)
  - ANXIETY [None]
  - BLOOD GLUCOSE FLUCTUATION [None]
  - DYSPHEMIA [None]
  - HYPERHIDROSIS [None]
  - INCREASED TENDENCY TO BRUISE [None]
  - NERVOUSNESS [None]
  - PANIC ATTACK [None]
  - PARALYSIS [None]
  - SPEECH DISORDER [None]
  - TREMOR [None]
